FAERS Safety Report 14382638 (Version 1)
Quarter: 2018Q1

REPORT INFORMATION
  Report Type: Spontaneous
  Country: US (occurrence: US)
  Receive Date: 20180112
  Receipt Date: 20180112
  Transmission Date: 20180509
  Serious: No
  Sender: FDA-Public Use
  Company Number: US-009507513-1712USA008626

PATIENT
  Age: 25 Year
  Sex: Female
  Weight: 67.2 kg

DRUGS (2)
  1. NEXPLANON [Suspect]
     Active Substance: ETONOGESTREL
     Dosage: 1 IMPLANT IN THE LEFT ARM
     Route: 059
     Dates: start: 20131224, end: 20171214
  2. NEXPLANON [Suspect]
     Active Substance: ETONOGESTREL
     Dosage: 1 IMPLANT
     Route: 059
     Dates: start: 201712

REACTIONS (6)
  - Device dislocation [Recovered/Resolved]
  - Surgery [Recovered/Resolved]
  - Implant site haemorrhage [Unknown]
  - Incorrect drug administration duration [Unknown]
  - Implant site scar [Unknown]
  - Complication associated with device [Recovered/Resolved]

NARRATIVE: CASE EVENT DATE: 20161225
